FAERS Safety Report 9126600 (Version 1)
Quarter: 2013Q1

REPORT INFORMATION
  Report Type: Spontaneous
  Country: US (occurrence: None)
  Receive Date: 20130130
  Receipt Date: 20130130
  Transmission Date: 20140127
  Serious: Yes (Death)
  Sender: FDA-Public Use
  Company Number: B0858916A

PATIENT
  Age: 45 Year
  Sex: Male

DRUGS (8)
  1. BUPROPION HYDROCHLORIDE [Suspect]
     Route: 048
  2. VENLAFAXINE HYDROCHLORIDE [Suspect]
     Route: 048
  3. TOPIRAMATE [Suspect]
     Route: 048
  4. PARACETAMOL [Suspect]
     Route: 048
  5. DIPHENHYDRAMINE [Suspect]
     Route: 048
  6. ALPRAZOLAM [Suspect]
     Route: 048
  7. MECLIZINE HYDROCHLORIDE [Suspect]
     Route: 048
  8. CARBON MONOXIDE [Suspect]
     Route: 055

REACTIONS (1)
  - Completed suicide [None]
